FAERS Safety Report 18162030 (Version 2)
Quarter: 2021Q3

REPORT INFORMATION
  Report Type: Spontaneous
  Country: US (occurrence: US)
  Receive Date: 20200818
  Receipt Date: 20210827
  Transmission Date: 20211014
  Serious: Yes (Death, Other)
  Sender: FDA-Public Use
  Company Number: US-GLAXOSMITHKLINE-US2020164597

PATIENT
  Sex: Male

DRUGS (4)
  1. RANITIDINE. [Suspect]
     Active Substance: RANITIDINE
     Indication: DYSPEPSIA
     Dosage: 2?3 TIMES PER WEEK
     Route: 048
     Dates: start: 200609, end: 201702
  2. ZANTAC [Suspect]
     Active Substance: RANITIDINE HYDROCHLORIDE
     Indication: DYSPEPSIA
     Dosage: AT LEAST 2?3 TIMES PER WEEK
     Route: 065
     Dates: start: 200601, end: 201701
  3. ZANTAC [Suspect]
     Active Substance: RANITIDINE HYDROCHLORIDE
     Indication: DYSPEPSIA
     Dosage: AT LEAST 2?3 TIMES PER WEEK
     Route: 065
     Dates: start: 200601, end: 201701
  4. RANITIDINE. [Suspect]
     Active Substance: RANITIDINE
     Indication: DYSPEPSIA
     Dosage: 2?3 TIMES PER WEEK
     Route: 048
     Dates: start: 200609, end: 201702

REACTIONS (1)
  - Pancreatic carcinoma [Fatal]
